FAERS Safety Report 15666417 (Version 1)
Quarter: 2018Q4

REPORT INFORMATION
  Report Type: Spontaneous
  Country: US (occurrence: US)
  Receive Date: 20181128
  Receipt Date: 20181128
  Transmission Date: 20190205
  Serious: No
  Sender: FDA-Public Use
  Company Number: US-SUNOVION-2018SUN004537

PATIENT
  Sex: Male

DRUGS (1)
  1. BROVANA [Suspect]
     Active Substance: ARFORMOTEROL TARTRATE
     Dosage: UNK
     Route: 055

REACTIONS (8)
  - Back pain [Unknown]
  - Fatigue [Unknown]
  - Chest pain [Unknown]
  - Dyspnoea [Unknown]
  - Swelling [Unknown]
  - Sinus congestion [Unknown]
  - Diarrhoea [Unknown]
  - Muscle spasms [Unknown]
